FAERS Safety Report 9972787 (Version 1)
Quarter: 2014Q1

REPORT INFORMATION
  Report Type: Spontaneous
  Country: US (occurrence: None)
  Receive Date: 20140128
  Receipt Date: 20140128
  Transmission Date: 20141002
  Serious: Yes (Disabling)
  Sender: FDA-Public Use
  Company Number: A-US2013-89980

PATIENT
  Age: 47 Year
  Sex: Female

DRUGS (1)
  1. TRACLEER (BOSENTAN) TABLET [Suspect]
     Indication: PULMONARY ARTERIAL HYPERTENSION
     Route: 048
     Dates: start: 20120329, end: 20131015

REACTIONS (2)
  - Pulmonary hypertension [None]
  - Pulmonary arterial wedge pressure increased [None]
